FAERS Safety Report 13782988 (Version 2)
Quarter: 2017Q4

REPORT INFORMATION
  Report Type: Spontaneous
  Country: US (occurrence: US)
  Receive Date: 20170724
  Receipt Date: 20171024
  Transmission Date: 20180320
  Serious: No
  Sender: FDA-Public Use
  Company Number: US-GLAXOSMITHKLINE-US2017113103

PATIENT
  Sex: Female

DRUGS (4)
  1. ASMANEX [Concomitant]
     Active Substance: MOMETASONE FUROATE
  2. BENICAR [Concomitant]
     Active Substance: OLMESARTAN MEDOXOMIL
  3. XANAX [Concomitant]
     Active Substance: ALPRAZOLAM
  4. SEREVENT DISKUS [Suspect]
     Active Substance: SALMETEROL XINAFOATE
     Indication: CHRONIC OBSTRUCTIVE PULMONARY DISEASE
     Dosage: 1 PUFF(S), BID
     Route: 055
     Dates: start: 201607

REACTIONS (4)
  - Dermatitis contact [Recovered/Resolved]
  - Rash [Recovered/Resolved]
  - Oral discomfort [Not Recovered/Not Resolved]
  - Hypersensitivity [Unknown]
